FAERS Safety Report 9333253 (Version 1)
Quarter: 2013Q2

REPORT INFORMATION
  Report Type: Spontaneous
  Country: US (occurrence: US)
  Receive Date: 20130606
  Receipt Date: 20130606
  Transmission Date: 20140414
  Serious: Yes (Hospitalization)
  Sender: FDA-Public Use
  Company Number: US-JNJFOC-20130522216

PATIENT
  Sex: Female
  Weight: 78.02 kg

DRUGS (4)
  1. REMICADE [Suspect]
     Indication: RHEUMATOID ARTHRITIS
     Route: 042
  2. CELEBREX [Suspect]
     Indication: PRODUCT USED FOR UNKNOWN INDICATION
     Dosage: STARTED IN MID-90S
     Route: 065
  3. COUMADIN [Suspect]
     Indication: ANTIPHOSPHOLIPID ANTIBODIES
     Route: 065
  4. METOPROLOL [Concomitant]
     Indication: HYPERTENSION
     Route: 065

REACTIONS (1)
  - Circulatory collapse [Unknown]
